FAERS Safety Report 5923830-3 (Version None)
Quarter: 2008Q3

REPORT INFORMATION
  Report Type: 
  Country: None (occurrence: None)
  Receive Date: 20080909
  Receipt Date: 20080702
  Transmission Date: 20090109
  Serious: Yes (Other)
  Sender: FDA-Public Use
  Company Number: 163-20785-08070160

PATIENT
  Age: 70 Year
  Sex: Female

DRUGS (1)
  1. THALOMID [Suspect]
     Indication: MULTIPLE MYELOMA
     Dosage: 100 MG, 1 IN 1 D, ORAL
     Route: 048
     Dates: start: 20080318

REACTIONS (5)
  - JOINT SWELLING [None]
  - PAIN IN EXTREMITY [None]
  - PULMONARY EMBOLISM [None]
  - TREMOR [None]
  - VISUAL IMPAIRMENT [None]
